FAERS Safety Report 20134161 (Version 1)
Quarter: 2021Q4

REPORT INFORMATION
  Report Type: Report from Study
  Country: BR (occurrence: BR)
  Receive Date: 20211201
  Receipt Date: 20211201
  Transmission Date: 20220303
  Serious: Yes (Other)
  Sender: FDA-Public Use
  Company Number: BR-NOVARTISPH-NVSC2021BR264846

PATIENT
  Age: 48 Year
  Sex: Female

DRUGS (5)
  1. TAMOXIFEN [Suspect]
     Active Substance: TAMOXIFEN
     Indication: Product used for unknown indication
     Dosage: UNK
     Route: 065
  2. RIBOCICLIB [Suspect]
     Active Substance: RIBOCICLIB
     Indication: Product used for unknown indication
     Dosage: 600 MG, QD
     Route: 065
  3. RIBOCICLIB [Suspect]
     Active Substance: RIBOCICLIB
     Dosage: 600 MG, QD
     Route: 065
  4. LETROZOLE [Suspect]
     Active Substance: LETROZOLE
     Indication: Product used for unknown indication
     Dosage: 2.5 MG, QD
     Route: 065
  5. LEUPROLIDE ACETATE [Concomitant]
     Active Substance: LEUPROLIDE ACETATE
     Indication: Product used for unknown indication
     Dosage: 7.5 MG, QMO
     Route: 058

REACTIONS (18)
  - Invasive ductal breast carcinoma [Recovering/Resolving]
  - Lung carcinoma cell type unspecified stage II [Recovering/Resolving]
  - Hormone receptor positive breast cancer [Recovering/Resolving]
  - Bronchostenosis [Recovering/Resolving]
  - Neutropenia [Recovering/Resolving]
  - Hilar lymphadenopathy [Recovering/Resolving]
  - Lymphadenopathy mediastinal [Recovering/Resolving]
  - Gastrointestinal stoma complication [Recovering/Resolving]
  - Atelectasis [Recovering/Resolving]
  - Haemangioma of liver [Recovering/Resolving]
  - Breast neoplasm [Recovering/Resolving]
  - Nodule [Recovering/Resolving]
  - Bone lesion [Recovering/Resolving]
  - Bone disorder [Recovering/Resolving]
  - Lymphadenopathy [Recovering/Resolving]
  - Disease progression [Recovering/Resolving]
  - Disease recurrence [Recovering/Resolving]
  - Lung neoplasm [Recovering/Resolving]
